FAERS Safety Report 10194717 (Version 2)
Quarter: 2014Q2

REPORT INFORMATION
  Report Type: Report from Study
  Country: CA (occurrence: CA)
  Receive Date: 20140526
  Receipt Date: 20140604
  Transmission Date: 20141212
  Serious: Yes (Other)
  Sender: FDA-Public Use
  Company Number: CA-BRISTOL-MYERS SQUIBB COMPANY-20811360

PATIENT
  Age: 65 Year
  Sex: Female

DRUGS (13)
  1. ORENCIA [Suspect]
     Indication: RHEUMATOID ARTHRITIS
     Route: 042
     Dates: start: 20111207
  2. ATACAND [Concomitant]
  3. DOCUSATE SODIUM [Concomitant]
  4. FLOVENT [Concomitant]
  5. FOSAMAX [Concomitant]
  6. PLAQUENIL [Concomitant]
  7. PARIET [Concomitant]
  8. PREDNISONE [Concomitant]
  9. FENTANYL PATCH [Concomitant]
     Route: 062
  10. SYNTHROID [Concomitant]
  11. VESICARE [Concomitant]
  12. XALATAN [Concomitant]
  13. LATANOPROST [Concomitant]

REACTIONS (2)
  - Squamous cell carcinoma [Unknown]
  - Wound infection [Unknown]
